FAERS Safety Report 5930338-8 (Version None)
Quarter: 2008Q4

REPORT INFORMATION
  Report Type: 
  Country: None (occurrence: None)
  Receive Date: 20081023
  Receipt Date: 20081015
  Transmission Date: 20090506
  Serious: Yes (Hospitalization)
  Sender: FDA-Public Use
  Company Number: ADE2008-0354

PATIENT
  Age: 56 Year
  Sex: Male

DRUGS (11)
  1. GABAPENTIN [Suspect]
     Dosage: 300MG - TID -
  2. FENTANYL-100 [Suspect]
     Indication: PAIN
     Dosage: ORAL
     Route: 048
  3. HALOPERIDOL [Suspect]
  4. HYDROMORPHONE HCL [Suspect]
     Indication: ANALGESIA
     Dosage: 25MG - DAILY - SQ
     Route: 058
  5. MORPHINE [Suspect]
     Indication: ANALGESIA
  6. OXYCONTIN [Suspect]
     Indication: ANALGESIA
     Dosage: 80MG - BID -
  7. ACETAMINOPHEN [Suspect]
     Dosage: 1G - QID -
  8. ALFENTANIL SQ [Concomitant]
  9. HYDROMORPHONE HCL [Concomitant]
  10. ... [Concomitant]
  11. ... [Concomitant]

REACTIONS (18)
  - ABDOMINAL PAIN [None]
  - AGGRESSION [None]
  - AGITATION [None]
  - DRUG WITHDRAWAL SYNDROME [None]
  - FEELING ABNORMAL [None]
  - HYPERHIDROSIS [None]
  - HYPERVENTILATION [None]
  - INADEQUATE ANALGESIA [None]
  - INFECTION [None]
  - METASTASES TO SPINE [None]
  - MYALGIA [None]
  - PILOERECTION [None]
  - RENAL IMPAIRMENT [None]
  - RESTLESSNESS [None]
  - SLEEP DISORDER [None]
  - SPINAL CORD COMPRESSION [None]
  - TACHYCARDIA [None]
  - THERAPEUTIC AGENT TOXICITY [None]
